FAERS Safety Report 4837409-8 (Version None)
Quarter: 2005Q4

REPORT INFORMATION
  Report Type: 
  Country: None (occurrence: None)
  Receive Date: 20051128
  Receipt Date: 20051116
  Transmission Date: 20060501
  Serious: Yes (Other)
  Sender: FDA-Public Use
  Company Number: DE-AMGEN-UK158087

PATIENT
  Age: 75 Year
  Sex: Male
  Weight: 79 kg

DRUGS (4)
  1. ARANESP [Suspect]
     Indication: RENAL FAILURE CHRONIC
     Route: 065
  2. UNSPECIFIED ANTIHYPERTENSIVE AGENT [Concomitant]
     Route: 065
  3. DIURETICS [Concomitant]
     Route: 065
  4. VITAMIN B COMPLEX CAP [Concomitant]

REACTIONS (1)
  - SHUNT OCCLUSION [None]
